FAERS Safety Report 25543218 (Version 4)
Quarter: 2025Q3

REPORT INFORMATION
  Report Type: Spontaneous
  Country: JP (occurrence: JP)
  Receive Date: 20250711
  Receipt Date: 20250904
  Transmission Date: 20251021
  Serious: Yes (Other)
  Sender: ARGENX BVBA
  Company Number: JP-ARGENX-2025-ARGX-JP004600AA

PATIENT

DRUGS (12)
  1. HERBALS [Suspect]
     Active Substance: HERBALS
     Indication: Nasopharyngitis
     Route: 048
     Dates: start: 20250609, end: 20250614
  2. EFGARTIGIMOD ALFA\HYALURONIDASE-QVFC [Suspect]
     Active Substance: EFGARTIGIMOD ALFA\HYALURONIDASE-QVFC
     Indication: Myasthenia gravis
     Route: 058
     Dates: start: 20250327
  3. ALENDRONATE [Concomitant]
     Active Substance: ALENDRONATE SODIUM
     Indication: Product used for unknown indication
     Route: 065
  4. DOMPERIDONE [Concomitant]
     Active Substance: DOMPERIDONE
     Indication: Product used for unknown indication
     Route: 065
  5. ESCITALOPRAM [Concomitant]
     Active Substance: ESCITALOPRAM OXALATE
     Indication: Product used for unknown indication
     Route: 065
  6. Ezetimibe dsep [Concomitant]
     Indication: Product used for unknown indication
     Route: 065
  7. LIMAPROST [Concomitant]
     Active Substance: LIMAPROST
     Indication: Product used for unknown indication
     Route: 065
  8. OMEGA-3-ACID ETHYL ESTERS [Concomitant]
     Active Substance: OMEGA-3-ACID ETHYL ESTERS
     Indication: Product used for unknown indication
     Route: 065
  9. PREDNISOLONE [Concomitant]
     Active Substance: PREDNISOLONE
     Route: 065
     Dates: start: 20250619
  10. PREDNISOLONE [Concomitant]
     Active Substance: PREDNISOLONE
     Route: 065
     Dates: start: 20250501
  11. PREDNISOLONE [Concomitant]
     Active Substance: PREDNISOLONE
     Indication: Product used for unknown indication
     Route: 065
     Dates: start: 20250327
  12. PROBUCOL [Concomitant]
     Active Substance: PROBUCOL
     Indication: Product used for unknown indication
     Route: 065

REACTIONS (16)
  - Cataract [Unknown]
  - Blood cholesterol increased [Unknown]
  - Mass [Recovering/Resolving]
  - Malaise [Unknown]
  - Muscular weakness [Unknown]
  - Head discomfort [Unknown]
  - Muscular weakness [Unknown]
  - Diplopia [Unknown]
  - Pyrexia [Unknown]
  - Pain in extremity [Unknown]
  - Muscular weakness [Unknown]
  - Diplopia [Unknown]
  - Fatigue [Unknown]
  - Sinusitis [Unknown]
  - Injection site pain [Unknown]
  - Injection site pain [Unknown]

NARRATIVE: CASE EVENT DATE: 20250327
